FAERS Safety Report 19084334 (Version 1)
Quarter: 2021Q2

REPORT INFORMATION
  Report Type: Spontaneous
  Country: JP (occurrence: JP)
  Receive Date: 20210401
  Receipt Date: 20210401
  Transmission Date: 20210717
  Serious: Yes (Other)
  Sender: FDA-Public Use
  Company Number: JP-ALLERGAN-2113459US

PATIENT
  Sex: Female

DRUGS (1)
  1. LINACLOTIDE ? BP [Suspect]
     Active Substance: LINACLOTIDE
     Indication: PRODUCT USED FOR UNKNOWN INDICATION
     Dosage: UNK UNK, UNKNOWN FREQ.
     Route: 048

REACTIONS (2)
  - Parkinson^s disease [Unknown]
  - Dysphagia [Unknown]

NARRATIVE: CASE EVENT DATE: 20210309
